FAERS Safety Report 16268681 (Version 1)
Quarter: 2019Q2

REPORT INFORMATION
  Report Type: Spontaneous
  Country: GR (occurrence: GR)
  Receive Date: 20190503
  Receipt Date: 20190503
  Transmission Date: 20190711
  Serious: Yes (Other)
  Sender: FDA-Public Use
  Company Number: GR-TEVA-2019-GR-1044593

PATIENT
  Age: 63 Year
  Sex: Female

DRUGS (7)
  1. SINTROM 4MG TAB [Concomitant]
     Route: 048
  2. METHOTREXATE. [Suspect]
     Active Substance: METHOTREXATE
     Route: 048
     Dates: start: 2006
  3. RYTHMONORM 150 MG [Concomitant]
     Route: 048
  4. FILICINE 5MG/TAB [Concomitant]
     Route: 048
  5. ENBREL [Suspect]
     Active Substance: ETANERCEPT
     Route: 030
     Dates: start: 2009, end: 2011
  6. MEDROL TABLET [Concomitant]
     Route: 048
     Dates: start: 2006
  7. ACTONEL 75MG TABLETS [Concomitant]
     Route: 048
     Dates: start: 2011, end: 2011

REACTIONS (1)
  - B-cell lymphoma [Not Recovered/Not Resolved]

NARRATIVE: CASE EVENT DATE: 2011
